FAERS Safety Report 4968069-3 (Version None)
Quarter: 2006Q2

REPORT INFORMATION
  Report Type: 
  Country: None (occurrence: None)
  Receive Date: 20060410
  Receipt Date: 20060206
  Transmission Date: 20061013
  Serious: Yes (Other)
  Sender: FDA-Public Use
  Company Number: NO-ROCHE-435926

PATIENT
  Sex: Male

DRUGS (1)
  1. ROACCUTAN [Suspect]
     Indication: ACNE
     Route: 048
     Dates: start: 19800615

REACTIONS (3)
  - ADVERSE EVENT [None]
  - DRY EYE [None]
  - SKIN DISORDER [None]
